FAERS Safety Report 4705697-4 (Version None)
Quarter: 2005Q2

REPORT INFORMATION
  Report Type: 
  Country: None (occurrence: None)
  Receive Date: 20050629
  Receipt Date: 20050617
  Transmission Date: 20051028
  Serious: Yes (Other)
  Sender: FDA-Public Use
  Company Number: 2005092127

PATIENT
  Age: 52 Year
  Sex: Male

DRUGS (7)
  1. GABAPENTIN [Suspect]
     Indication: RESTLESS LEGS SYNDROME
     Dosage: 100 MG (100 MG, 1 IN 1 D)
     Dates: start: 20020902
  2. RANITIDINE HCL [Concomitant]
  3. CLONAZEPAM [Concomitant]
  4. SERTRALINE HCL [Concomitant]
  5. ERYTHROPOIETIN (ERYTHROPOIETIN) [Concomitant]
  6. VITAMIN B6 (VITAMIN B6) [Concomitant]
  7. MULTIVITAMIN [Concomitant]

REACTIONS (4)
  - BLOOD CREATINE PHOSPHOKINASE INCREASED [None]
  - BLOOD CREATININE INCREASED [None]
  - HYPOAESTHESIA [None]
  - MYOPATHY [None]
